FAERS Safety Report 18038797 (Version 1)
Quarter: 2020Q3

REPORT INFORMATION
  Report Type: Spontaneous
  Country: PT (occurrence: PT)
  Receive Date: 20200717
  Receipt Date: 20200717
  Transmission Date: 20201103
  Serious: Yes (Hospitalization)
  Sender: FDA-Public Use
  Company Number: PT-FRESENIUS KABI-FK202007241

PATIENT
  Age: 47 Year
  Sex: Male

DRUGS (1)
  1. FUROSEMIDE (MANUFACTURER UNKNOWN) [Suspect]
     Active Substance: FUROSEMIDE
     Indication: DIURETIC THERAPY
     Dosage: MAXIMUM DAILY DOSE
     Route: 042

REACTIONS (2)
  - Liver injury [Unknown]
  - Acute kidney injury [Recovered/Resolved]
